FAERS Safety Report 14103124 (Version 1)
Quarter: 2017Q4

REPORT INFORMATION
  Report Type: Spontaneous
  Country: US (occurrence: US)
  Receive Date: 20171018
  Receipt Date: 20171018
  Transmission Date: 20180321
  Serious: No
  Sender: FDA-Public Use
  Company Number: US-GLAXOSMITHKLINE-US2017158093

PATIENT
  Age: 2 Year
  Sex: Male

DRUGS (1)
  1. EXCEDRIN MIGRAINE [Suspect]
     Active Substance: ACETAMINOPHEN\ASPIRIN\CAFFEINE
     Indication: PRODUCT USED FOR UNKNOWN INDICATION
     Dosage: UNK, 2YR OLD SON TOOK PART OF A CRUSHED EXCEDRIN MIGRAINE PILL
     Dates: start: 20171013, end: 20171013

REACTIONS (1)
  - Accidental exposure to product by child [Unknown]
